FAERS Safety Report 11371911 (Version 2)
Quarter: 2015Q3

REPORT INFORMATION
  Report Type: Report from Study
  Country: HN (occurrence: HN)
  Receive Date: 20150812
  Receipt Date: 20150824
  Transmission Date: 20151125
  Serious: Yes (Death, Hospitalization)
  Sender: FDA-Public Use
  Company Number: PHHY2015HN097430

PATIENT
  Sex: Male
  Weight: 73.18 kg

DRUGS (1)
  1. GLIVEC [Suspect]
     Active Substance: IMATINIB MESYLATE
     Indication: CHRONIC MYELOID LEUKAEMIA
     Dosage: 400 MG, QD
     Route: 048
     Dates: start: 20130409

REACTIONS (4)
  - Headache [Unknown]
  - Cerebral haemorrhage [Fatal]
  - Epistaxis [Unknown]
  - Pyrexia [Unknown]
